FAERS Safety Report 8922163 (Version 3)
Quarter: 2013Q1

REPORT INFORMATION
  Report Type: Report from Study
  Country: JP (occurrence: JP)
  Receive Date: 20121123
  Receipt Date: 20130116
  Transmission Date: 20140127
  Serious: No
  Sender: FDA-Public Use
  Company Number: JP-JNJFOC-20121109526

PATIENT
  Age: 69 Year
  Sex: Female
  Weight: 48 kg

DRUGS (18)
  1. SIMPONI [Suspect]
     Indication: RHEUMATOID ARTHRITIS
     Route: 058
     Dates: start: 20120611
  2. SIMPONI [Suspect]
     Indication: RHEUMATOID ARTHRITIS
     Route: 058
     Dates: start: 20120511
  3. SIMPONI [Suspect]
     Indication: RHEUMATOID ARTHRITIS
     Route: 058
     Dates: start: 20120711
  4. SIMPONI [Suspect]
     Indication: RHEUMATOID ARTHRITIS
     Route: 058
     Dates: start: 20120810
  5. SIMPONI [Suspect]
     Indication: RHEUMATOID ARTHRITIS
     Route: 058
     Dates: start: 20120912
  6. SIMPONI [Suspect]
     Indication: RHEUMATOID ARTHRITIS
     Route: 058
     Dates: start: 20121012
  7. SIMPONI [Suspect]
     Indication: RHEUMATOID ARTHRITIS
     Route: 058
     Dates: start: 20121114
  8. METHOTREXATE [Concomitant]
     Indication: RHEUMATOID ARTHRITIS
  9. MUCOSTA [Concomitant]
     Indication: PROPHYLAXIS
     Route: 048
  10. FERROMIA [Concomitant]
     Indication: PROPHYLAXIS
     Route: 048
  11. ALFAROL [Concomitant]
     Indication: OSTEOPOROSIS
     Route: 048
  12. TAKEPRON [Concomitant]
     Indication: PROPHYLAXIS
     Route: 048
  13. ZYLORIC [Concomitant]
     Indication: HYPERURICAEMIA
     Route: 048
  14. FOLIAMIN [Concomitant]
     Indication: PROPHYLAXIS
     Route: 048
  15. MOHRUS [Concomitant]
     Indication: RHEUMATOID ARTHRITIS
     Route: 061
  16. ARGAMATE [Concomitant]
     Indication: RENAL IMPAIRMENT
     Route: 048
  17. RECALBON [Concomitant]
     Indication: OSTEOPOROSIS
     Route: 048
  18. FLURBIPROFEN [Concomitant]
     Indication: RHEUMATOID ARTHRITIS
     Route: 061

REACTIONS (2)
  - Blood creatinine increased [Not Recovered/Not Resolved]
  - Malaise [Recovered/Resolved]
